FAERS Safety Report 11628827 (Version 1)
Quarter: 2015Q4

REPORT INFORMATION
  Report Type: Spontaneous
  Country: US (occurrence: None)
  Receive Date: 20151013
  Receipt Date: 20151013
  Transmission Date: 20160304
  Serious: Yes (Life-Threatening, Hospitalization, Disabling, Other)
  Sender: FDA-Public Use
  Company Number: None

PATIENT
  Age: 59 Year
  Sex: Female
  Weight: 68.04 kg

DRUGS (15)
  1. PROSE SCLERAL LENSES [Concomitant]
  2. KIRKLAND ^ON THE GO ACTIVE^ MULTI-VITAMIN PACK [Concomitant]
  3. RANITODINE [Concomitant]
  4. TRIAMCINOLONE PASTE [Concomitant]
  5. LOTEMAX OINTMENT [Concomitant]
  6. NYSTATIN-TRIAMCINOLONE OINTMENT [Concomitant]
     Active Substance: NYSTATIN\TRIAMCINOLONE
  7. RESTASSIS [Concomitant]
  8. SERUM TEARS [Concomitant]
  9. OMEGA 3 [Concomitant]
     Active Substance: OMEGA-3 FATTY ACIDS
  10. LACRISERT [Concomitant]
     Active Substance: HYDROXYPROPYL CELLULOSE
  11. LAMICTAL [Suspect]
     Active Substance: LAMOTRIGINE
     Indication: SEIZURE
     Dosage: 1/2 TAB
     Route: 048
     Dates: start: 20150120, end: 20150206
  12. RETAINE [Concomitant]
  13. TOPICORT [Concomitant]
     Active Substance: DESOXIMETASONE
  14. FLONASE [Concomitant]
     Active Substance: FLUTICASONE PROPIONATE
  15. VITAMIN D [Concomitant]
     Active Substance: CHOLECALCIFEROL

REACTIONS (3)
  - Rash [None]
  - Stevens-Johnson syndrome [None]
  - Toxic epidermal necrolysis [None]

NARRATIVE: CASE EVENT DATE: 20150206
